FAERS Safety Report 8770399 (Version 2)
Quarter: 2012Q4

REPORT INFORMATION
  Report Type: 
  Country: SI (occurrence: SI)
  Receive Date: 20120906
  Receipt Date: 20120917
  Transmission Date: 20130627
  Serious: Yes (Other)
  Sender: FDA-Public Use
  Company Number: PHHY2012SI076690

PATIENT
  Sex: Male

DRUGS (3)
  1. EXJADE [Suspect]
     Indication: HAEMOCHROMATOSIS
     Dosage: 1500 mg, Daily
     Dates: start: 200709
  2. EXJADE [Suspect]
     Dosage: 500 mg, UNK
     Route: 048
  3. RED BLOOD CELLS, CONCENTRATED [Concomitant]
     Indication: ANAEMIA
     Dosage: 300 ml, 2-3 packs

REACTIONS (3)
  - Vision blurred [Recovered/Resolved]
  - Visual impairment [Recovered/Resolved]
  - Visual acuity reduced [Recovered/Resolved]
